FAERS Safety Report 15244772 (Version 1)
Quarter: 2018Q3

REPORT INFORMATION
  Report Type: Spontaneous
  Country: US (occurrence: US)
  Receive Date: 20180806
  Receipt Date: 20180806
  Transmission Date: 20181010
  Serious: Yes (Other)
  Sender: FDA-Public Use
  Company Number: US-SHIRE-US201829848

PATIENT
  Age: 13 Year
  Sex: Male
  Weight: 71.6 kg

DRUGS (1)
  1. ELAPRASE [Suspect]
     Active Substance: IDURSULFASE
     Indication: MUCOPOLYSACCHARIDOSIS II
     Dosage: 36 MG, 1X/WEEK
     Route: 042
     Dates: start: 201410

REACTIONS (1)
  - Central venous pressure increased [Unknown]

NARRATIVE: CASE EVENT DATE: 20180730
